FAERS Safety Report 9342657 (Version 2)
Quarter: 2013Q2

REPORT INFORMATION
  Report Type: Report from Study
  Country: IT (occurrence: IT)
  Receive Date: 20130611
  Receipt Date: 20130619
  Transmission Date: 20140414
  Serious: Yes (Other)
  Sender: FDA-Public Use
  Company Number: PHHY2012IT094539

PATIENT
  Age: 56 Year
  Sex: Female
  Weight: 74 kg

DRUGS (3)
  1. CERTICAN [Suspect]
     Indication: PROPHYLAXIS AGAINST TRANSPLANT REJECTION
     Dosage: 1.5 MG, UNK
     Route: 048
     Dates: start: 20080420, end: 20101019
  2. URBASON [Concomitant]
     Dosage: UNK
  3. URBASON [Concomitant]
     Dosage: UNK DOSE REDUCED TO 4/2 ON ALTERNATE DAYS
     Dates: start: 20100625

REACTIONS (1)
  - Osteonecrosis [Not Recovered/Not Resolved]
